FAERS Safety Report 10024414 (Version 3)
Quarter: 2014Q1

REPORT INFORMATION
  Report Type: Spontaneous
  Country: IT (occurrence: IT)
  Receive Date: 20140320
  Receipt Date: 20140327
  Transmission Date: 20141002
  Serious: Yes (Hospitalization)
  Sender: FDA-Public Use
  Company Number: IT-PFIZER INC-2014022199

PATIENT
  Age: 88 Year
  Sex: Female

DRUGS (8)
  1. AMLODIPINE BESILATE [Suspect]
     Dosage: UNK
     Dates: start: 20130101, end: 20131112
  2. BISOPROLOL FUMARATE [Suspect]
     Dosage: UNK
     Dates: start: 20130101, end: 20131112
  3. LORAZEPAM [Suspect]
     Dosage: 10 UG, UNK
     Dates: start: 20130101, end: 20131112
  4. LISINOPRIL [Suspect]
     Dosage: UNK
     Dates: start: 20130101, end: 20131112
  5. NITROGLYCERIN [Suspect]
     Dosage: 10 MG, DAILY
     Route: 062
     Dates: start: 20130101, end: 20131112
  6. FUROSEMIDE [Suspect]
     Dosage: UNK
     Dates: start: 20130101, end: 20131112
  7. PLAVIX [Concomitant]
     Dosage: 12.5 MG, UNK
     Route: 048
  8. ATORVASTATIN CALCIUM [Concomitant]
     Dosage: UNK
     Route: 065

REACTIONS (3)
  - Head injury [Recovering/Resolving]
  - Pelvic fracture [Recovering/Resolving]
  - Syncope [Recovering/Resolving]
